FAERS Safety Report 6896664-3 (Version None)
Quarter: 2010Q3

REPORT INFORMATION
  Report Type: 
  Country: None (occurrence: None)
  Receive Date: 20100802
  Receipt Date: 20100723
  Transmission Date: 20110219
  Serious: Yes (Hospitalization)
  Sender: FDA-Public Use
  Company Number: FR-GILEAD-E2B_00000792

PATIENT
  Age: 67 Year
  Sex: Female
  Weight: 100 kg

DRUGS (1)
  1. AMBRISENTAN [Suspect]
     Indication: PULMONARY ARTERIAL HYPERTENSION
     Route: 065
     Dates: start: 20100127

REACTIONS (4)
  - CARDIAC FAILURE [None]
  - FLUID RETENTION [None]
  - GENERALISED OEDEMA [None]
  - WEIGHT INCREASED [None]
